FAERS Safety Report 9558409 (Version 1)
Quarter: 2013Q3

REPORT INFORMATION
  Report Type: Spontaneous
  Country: FR (occurrence: FR)
  Receive Date: 20130926
  Receipt Date: 20130926
  Transmission Date: 20140515
  Serious: Yes (Hospitalization)
  Sender: FDA-Public Use
  Company Number: FR-ROCHE-1280463

PATIENT
  Age: 54 Year
  Sex: Male

DRUGS (9)
  1. CELLCEPT [Suspect]
     Indication: LIVER TRANSPLANT
     Route: 048
     Dates: start: 201305, end: 20130730
  2. CELLCEPT [Suspect]
     Route: 065
     Dates: start: 20130731
  3. PROGRAF [Suspect]
     Indication: LIVER TRANSPLANT
     Route: 048
     Dates: start: 201305
  4. CORTANCYL [Suspect]
     Indication: LIVER TRANSPLANT
     Route: 048
     Dates: start: 201305
  5. INEXIUM [Concomitant]
     Route: 065
     Dates: start: 201305
  6. KARDEGIC [Concomitant]
     Route: 065
     Dates: start: 201305
  7. LOXEN LP 50 [Concomitant]
     Route: 065
     Dates: start: 201305
  8. LYRICA [Concomitant]
     Dosage: 3 DF DAILY SINCE MAY 2013
     Route: 065
     Dates: start: 201305
  9. SPECIAFOLDINE [Concomitant]
     Route: 065

REACTIONS (2)
  - Aspergillus infection [Recovering/Resolving]
  - Cytomegalovirus test positive [Recovering/Resolving]
